FAERS Safety Report 6538279-2 (Version None)
Quarter: 2010Q1

REPORT INFORMATION
  Report Type: 
  Country: None (occurrence: None)
  Receive Date: 20100112
  Receipt Date: 20100112
  Transmission Date: 20100710
  Serious: Yes (Death)
  Sender: FDA-Public Use
  Company Number: None

PATIENT
  Sex: Female
  Weight: 62.1428 kg

DRUGS (9)
  1. CIPROFLOXACIN 250 MG UNKNOWN [Suspect]
     Indication: URINARY TRACT INFECTION
     Dosage: PO
     Route: 048
     Dates: start: 20090730, end: 20090805
  2. VESICARE [Concomitant]
  3. BROMOCRIPTINE [Concomitant]
  4. PAXIL [Concomitant]
  5. BENZTROPINE MESYLATE [Concomitant]
  6. MEDROXYPROGESTERONE [Concomitant]
  7. DIPHENHYDRAMINE [Concomitant]
  8. DESMOPRESSIN [Concomitant]
  9. IBUPROFEN [Concomitant]

REACTIONS (1)
  - ANAPHYLACTIC REACTION [None]
